FAERS Safety Report 24180621 (Version 3)
Quarter: 2024Q4

REPORT INFORMATION
  Report Type: Spontaneous
  Country: IT (occurrence: IT)
  Receive Date: 20240806
  Receipt Date: 20241002
  Transmission Date: 20250114
  Serious: No
  Sender: PFIZER
  Company Number: IT-PFIZER INC-PV202400096094

PATIENT

DRUGS (1)
  1. FILGRASTIM [Suspect]
     Active Substance: FILGRASTIM
     Dosage: UNK

REACTIONS (1)
  - Syringe issue [Unknown]
